FAERS Safety Report 8770909 (Version 2)
Quarter: 2012Q4

REPORT INFORMATION
  Report Type: Report from Study
  Country: DE (occurrence: DE)
  Receive Date: 20120907
  Receipt Date: 20120919
  Transmission Date: 20130627
  Serious: Yes (Other)
  Sender: FDA-Public Use
  Company Number: DE-B.I. PHARMACEUTICALS,INC./RIDGEFIELD-2012-DE-02062DE

PATIENT
  Age: 81 Year
  Sex: Female

DRUGS (11)
  1. MICARDIS [Suspect]
     Route: 048
  2. CYMBALTA [Suspect]
     Route: 048
  3. LEVOMEPROMAZINE [Suspect]
     Dosage: 3 anz
     Route: 048
     Dates: start: 20120830
  4. METHIONINE [Suspect]
     Dosage: 1 anz
     Route: 048
     Dates: start: 20120830
  5. PANTOZOL [Suspect]
     Dosage: 1 anz
     Route: 048
     Dates: start: 20120830
  6. ASS [Suspect]
     Dosage: 1 anz
     Route: 048
     Dates: start: 20120830
  7. FERROSANOL [Suspect]
     Route: 048
  8. OMEPRAZOLE [Suspect]
     Route: 048
  9. L-THYROXIN [Suspect]
     Dosage: 1 anz
     Route: 048
     Dates: start: 20120830
  10. RAMIPRIL [Suspect]
     Dosage: 1 anz
     Route: 048
     Dates: start: 20120830
  11. LORAZEPAM [Suspect]
     Dosage: 0.5 anz
     Route: 048
     Dates: start: 20120830

REACTIONS (9)
  - Medication error [Recovered/Resolved]
  - Hypotension [Recovered/Resolved]
  - Poor quality sleep [Recovered/Resolved]
  - Speech disorder [Recovered/Resolved]
  - Slow response to stimuli [Recovered/Resolved]
  - Dizziness [Recovered/Resolved]
  - General physical condition [Recovered/Resolved]
  - Wrong drug administered [None]
  - Accidental exposure to product [None]
